FAERS Safety Report 6454077-2 (Version None)
Quarter: 2009Q4

REPORT INFORMATION
  Report Type: 
  Country: None (occurrence: None)
  Receive Date: 20091124
  Receipt Date: 20091118
  Transmission Date: 20100525
  Serious: Yes (Other)
  Sender: FDA-Public Use
  Company Number: B0606355A

PATIENT
  Sex: Female

DRUGS (5)
  1. RELENZA [Suspect]
     Indication: INFLUENZA
     Dosage: 10MG TWICE PER DAY
     Route: 055
     Dates: start: 20091117
  2. ASVERIN [Concomitant]
     Dosage: .4G THREE TIMES PER DAY
     Route: 048
     Dates: start: 20091117
  3. MUCODYNE [Concomitant]
     Dosage: 1.2G THREE TIMES PER DAY
     Route: 048
     Dates: start: 20091117
  4. UNKNOWN DRUG [Concomitant]
     Dosage: .7G THREE TIMES PER DAY
     Route: 048
     Dates: start: 20091117
  5. TULOBUTEROL [Concomitant]
     Dosage: 1MG PER DAY
     Route: 062

REACTIONS (1)
  - FEBRILE CONVULSION [None]
